FAERS Safety Report 7380307 (Version 3)
Quarter: 2013Q4

REPORT INFORMATION
  Report Type: Spontaneous
  Country: US (occurrence: US)
  Receive Date: 20100507
  Receipt Date: 20131223
  Transmission Date: 20140711
  Serious: Yes (Hospitalization)
  Sender: FDA-Public Use
  Company Number: US-BAYER-201021564NA

PATIENT
  Age: 16 Year
  Sex: Female

DRUGS (9)
  1. YAZ [Suspect]
     Indication: PREMENSTRUAL SYNDROME
     Dosage: UNK UNK, QD
     Route: 048
     Dates: start: 200801
  2. YASMIN [Suspect]
     Indication: PRODUCT USED FOR UNKNOWN INDICATION
     Dosage: UNK UNK, QD
     Route: 048
     Dates: start: 2007, end: 2008
  3. IBUPROFEN [Concomitant]
  4. MOTRIN [Concomitant]
  5. PROTONIX [Concomitant]
  6. CLARITIN [Concomitant]
  7. BROMPHENIRAMINE [Concomitant]
  8. AZITHROMYCIN [Concomitant]
     Dosage: 250 MG, UNK
  9. PSEUDOVENT [Concomitant]

REACTIONS (4)
  - Gallbladder injury [None]
  - Cholecystitis acute [None]
  - Cholesterosis [None]
  - Cholelithiasis [None]
